FAERS Safety Report 10230956 (Version 1)
Quarter: 2014Q2

REPORT INFORMATION
  Report Type: Report from Study
  Country: US (occurrence: US)
  Receive Date: 20140611
  Receipt Date: 20140611
  Transmission Date: 20141212
  Serious: Yes (Other)
  Sender: FDA-Public Use
  Company Number: PHEH2014US011666

PATIENT
  Age: 15 Year
  Sex: Male
  Weight: 59 kg

DRUGS (10)
  1. TOBI PODHALER [Suspect]
     Indication: CYSTIC FIBROSIS
     Dosage: 112 MG, BID
     Route: 055
     Dates: start: 201309
  2. TOBI PODHALER [Suspect]
     Dosage: 112 MG, BID
     Route: 055
  3. AZITHROMYCIN [Concomitant]
     Dosage: UNK UKN, UNK
  4. OMEPRAZOLE [Concomitant]
     Dosage: UNK UKN, UNK
  5. MULTIVITAMIN//VITAMINS NOS [Concomitant]
     Dosage: UNK UKN, UNK
  6. CREON [Concomitant]
     Dosage: UNK UKN, UNK
  7. ADVAIR [Concomitant]
     Dosage: UNK UKN, UNK
  8. ALBUTEROL [Concomitant]
     Dosage: UNK UKN, UNK
  9. CEFTAZIDIME [Concomitant]
     Dosage: UNK UKN, UNK
  10. HYPERTONIC SALINE SOLUTION [Concomitant]
     Dosage: UNK UKN, UNK

REACTIONS (3)
  - Stenotrophomonas infection [Not Recovered/Not Resolved]
  - Cough [Not Recovered/Not Resolved]
  - Throat irritation [Not Recovered/Not Resolved]
